FAERS Safety Report 4880025-2 (Version None)
Quarter: 2006Q1

REPORT INFORMATION
  Report Type: 
  Country: None (occurrence: None)
  Receive Date: 20060113
  Receipt Date: 20060112
  Transmission Date: 20060701
  Serious: Yes (Life-Threatening, Other)
  Sender: FDA-Public Use
  Company Number: JP-SANOFI-SYNTHELABO-F01200600081

PATIENT
  Sex: Female

DRUGS (3)
  1. OXALIPLATIN [Suspect]
     Indication: COLON CANCER
     Route: 042
     Dates: start: 20050602, end: 20050616
  2. FLUOROURACIL [Suspect]
     Dosage: 450MG/BODY IN BOLUS THEN 725 MG/BODY AS CONTINUOUS INFUSION DAYS 1 + 2
     Route: 042
     Dates: start: 20050602, end: 20050617
  3. CALCIUM LEVOFOLINATE [Suspect]
     Route: 042
     Dates: start: 20050602, end: 20050617

REACTIONS (7)
  - ACUTE RESPIRATORY FAILURE [None]
  - BLOOD CREATININE INCREASED [None]
  - BLOOD UREA INCREASED [None]
  - CARDIAC FAILURE [None]
  - FATIGUE [None]
  - HAEMOGLOBIN DECREASED [None]
  - OEDEMA [None]
